FAERS Safety Report 9448528 (Version 1)
Quarter: 2013Q3

REPORT INFORMATION
  Report Type: Spontaneous
  Country: AR (occurrence: AR)
  Receive Date: 20130808
  Receipt Date: 20130808
  Transmission Date: 20140515
  Serious: Yes (Death)
  Sender: FDA-Public Use
  Company Number: AR-ELI_LILLY_AND_COMPANY-AR201308001202

PATIENT
  Sex: 0

DRUGS (1)
  1. HUTROPE [Suspect]

REACTIONS (2)
  - Nervous system disorder [Fatal]
  - Death [Fatal]
